FAERS Safety Report 9516599 (Version 1)
Quarter: 2013Q3

REPORT INFORMATION
  Report Type: Report from Study
  Country: CA (occurrence: CA)
  Receive Date: 20130911
  Receipt Date: 20130911
  Transmission Date: 20140515
  Serious: Yes (Hospitalization, Other)
  Sender: FDA-Public Use
  Company Number: CA-JNJFOC-20130902680

PATIENT
  Age: 55 Year
  Sex: Female

DRUGS (2)
  1. REMICADE [Suspect]
     Indication: CROHN^S DISEASE
     Dosage: 52 WEEKS
     Route: 042
     Dates: start: 20130727
  2. VITAMIN D [Concomitant]
     Route: 065

REACTIONS (6)
  - Endoscopic retrograde cholangiopancreatography [Unknown]
  - White blood cell count decreased [Recovering/Resolving]
  - Hepatic enzyme increased [Recovering/Resolving]
  - Body temperature increased [Recovering/Resolving]
  - Abdominal pain [Recovering/Resolving]
  - Abdominal distension [Recovering/Resolving]
